FAERS Safety Report 15802457 (Version 2)
Quarter: 2019Q1

REPORT INFORMATION
  Report Type: Spontaneous
  Country: US (occurrence: US)
  Receive Date: 20190109
  Receipt Date: 20190130
  Transmission Date: 20190417
  Serious: Yes (Hospitalization, Other)
  Sender: FDA-Public Use
  Company Number: US-DRREDDYS-USA/USA/19/0106698

PATIENT
  Age: 12 Year
  Sex: Female

DRUGS (1)
  1. IBUPROFEN. [Suspect]
     Active Substance: IBUPROFEN
     Indication: HEADACHE
     Dosage: SIX TIMES A DAY
     Route: 065

REACTIONS (8)
  - Overdose [Recovering/Resolving]
  - Retinal detachment [Recovered/Resolved]
  - Choroiditis [Recovered/Resolved]
  - Lyme disease [Recovering/Resolving]
  - Self-medication [Recovering/Resolving]
  - Tubulointerstitial nephritis and uveitis syndrome [Recovering/Resolving]
  - Papilloedema [Recovered/Resolved]
  - Chronic kidney disease [Not Recovered/Not Resolved]
